FAERS Safety Report 13588247 (Version 2)
Quarter: 2017Q2

REPORT INFORMATION
  Report Type: Spontaneous
  Country: BR (occurrence: BR)
  Receive Date: 20170528
  Receipt Date: 20170607
  Transmission Date: 20170830
  Serious: Yes (Death, Hospitalization, Other)
  Sender: FDA-Public Use
  Company Number: BR-ROCHE-1940352

PATIENT
  Sex: Female

DRUGS (1)
  1. ACTEMRA [Suspect]
     Active Substance: TOCILIZUMAB
     Indication: RHEUMATOID ARTHRITIS
     Route: 058

REACTIONS (8)
  - Fall [Unknown]
  - Wound dehiscence [Unknown]
  - Arthritis bacterial [Unknown]
  - Acute respiratory failure [Fatal]
  - Lung infection [Unknown]
  - Arthropathy [Unknown]
  - Chronic obstructive pulmonary disease [Unknown]
  - Septic shock [Fatal]
